FAERS Safety Report 7219163-8 (Version None)
Quarter: 2011Q1

REPORT INFORMATION
  Report Type: 
  Country: None (occurrence: None)
  Receive Date: 20110111
  Receipt Date: 20101228
  Transmission Date: 20110831
  Serious: Yes (Other)
  Sender: FDA-Public Use
  Company Number: FR-RANBAXY-2010RR-40950

PATIENT
  Age: 32 Year
  Sex: Female

DRUGS (4)
  1. FENOFIBRATE [Suspect]
     Indication: PRODUCT USED FOR UNKNOWN INDICATION
     Dosage: UNK
     Dates: end: 20101105
  2. SEROPRAM [Suspect]
     Indication: PRODUCT USED FOR UNKNOWN INDICATION
     Dosage: UNK
     Dates: start: 20100820, end: 20101105
  3. ATENOLOL [Suspect]
     Indication: PRODUCT USED FOR UNKNOWN INDICATION
     Dosage: UNK
     Dates: end: 20101105
  4. DEPAKOTE [Suspect]
     Indication: DEPRESSION
     Dosage: UNK
     Dates: end: 20100820

REACTIONS (1)
  - ABORTION INDUCED [None]
